FAERS Safety Report 16594052 (Version 1)
Quarter: 2019Q3

REPORT INFORMATION
  Report Type: Spontaneous
  Country: US (occurrence: US)
  Receive Date: 20190718
  Receipt Date: 20190718
  Transmission Date: 20191004
  Serious: No
  Sender: FDA-Public Use
  Company Number: US-TAKEDA-2019TUS042886

PATIENT
  Age: 57 Year
  Sex: Male
  Weight: 81.63 kg

DRUGS (2)
  1. PROPECIA [Concomitant]
     Active Substance: FINASTERIDE
     Indication: ALOPECIA
     Dosage: UNK
     Route: 065
  2. ROZEREM [Suspect]
     Active Substance: RAMELTEON
     Indication: INSOMNIA
     Dosage: 8 MILLIGRAM, QD
     Route: 048
     Dates: start: 20190708, end: 20190709

REACTIONS (8)
  - Paranoia [Recovered/Resolved]
  - Poor quality sleep [Recovered/Resolved]
  - Headache [Recovered/Resolved]
  - Fatigue [Recovered/Resolved]
  - Palpitations [Recovered/Resolved]
  - Fear [Recovered/Resolved]
  - Hallucination [Recovered/Resolved]
  - Drug ineffective [Recovered/Resolved]

NARRATIVE: CASE EVENT DATE: 2019
